FAERS Safety Report 8604879-9 (Version None)
Quarter: 2012Q3

REPORT INFORMATION
  Report Type: 
  Country: None (occurrence: None)
  Receive Date: 20120808
  Receipt Date: 20120808
  Transmission Date: 20120928
  Serious: Yes (Hospitalization)
  Sender: FDA-Public Use
  Company Number: None

PATIENT
  Sex: Female
  Weight: 82.1011 kg

DRUGS (2)
  1. GEMCITABINE HYDROCHLORIDE [Suspect]
     Dosage: 1000MG/M2 D 1,8,15, OF 28
     Dates: start: 20120709
  2. ERLOTINIB HYDROCHLORIDE [Suspect]
     Dosage: 150MG D2-5, 9-12, 16-26
     Dates: start: 20120710, end: 20120713

REACTIONS (8)
  - LETHARGY [None]
  - HYPONATRAEMIA [None]
  - HYPOPHAGIA [None]
  - HYPOVOLAEMIA [None]
  - OVERDOSE [None]
  - DEHYDRATION [None]
  - MENTAL STATUS CHANGES [None]
  - RENAL FAILURE ACUTE [None]
